FAERS Safety Report 9641786 (Version 2)
Quarter: 2013Q4

REPORT INFORMATION
  Report Type: Report from Study
  Country: PR (occurrence: PR)
  Receive Date: 20131023
  Receipt Date: 20131023
  Transmission Date: 20140711
  Serious: Yes (Other)
  Sender: FDA-Public Use
  Company Number: PR-ABBVIE-13P-131-1144442-00

PATIENT
  Age: 35 Year
  Sex: Female
  Weight: 64.92 kg

DRUGS (4)
  1. HUMIRA [Suspect]
     Indication: COLITIS ULCERATIVE
     Route: 050
     Dates: start: 201209, end: 201212
  2. HUMIRA [Suspect]
     Indication: ARTHRITIS
     Route: 050
     Dates: start: 201301, end: 201302
  3. HUMIRA [Suspect]
     Route: 050
     Dates: start: 201303
  4. HUMIRA [Suspect]
     Route: 050
     Dates: start: 201306

REACTIONS (3)
  - Flatulence [Recovered/Resolved]
  - Abdominal discomfort [Recovered/Resolved]
  - Vomiting [Recovered/Resolved]
